FAERS Safety Report 5992952-3 (Version None)
Quarter: 2008Q4

REPORT INFORMATION
  Report Type: 
  Country: None (occurrence: None)
  Receive Date: 20081210
  Receipt Date: 20081125
  Transmission Date: 20090506
  Serious: Yes (Hospitalization)
  Sender: FDA-Public Use
  Company Number: SPV1-2008-02613

PATIENT
  Sex: Male

DRUGS (4)
  1. FOSRENOL [Suspect]
     Indication: HYPERPHOSPHATAEMIA
     Dosage: 1000 MG, 3X/DAY:TID, ORAL
     Route: 048
     Dates: start: 20070101
  2. ATENOLOL [Concomitant]
  3. TUMS /00108001/ (CALCIUM CARBONATE) [Concomitant]
  4. HECTOROL (DOCERCALCIFEROL) [Concomitant]

REACTIONS (4)
  - GASTRIC ULCER [None]
  - HAEMATOCHEZIA [None]
  - HAEMOGLOBIN DECREASED [None]
  - HYPERPARATHYROIDISM [None]
